FAERS Safety Report 25505505 (Version 5)
Quarter: 2025Q4

REPORT INFORMATION
  Report Type: Spontaneous
  Country: US (occurrence: US)
  Receive Date: 20250702
  Receipt Date: 20251021
  Transmission Date: 20260118
  Serious: No
  Sender: CALLIDITAS THERAPEUTICS AB
  Company Number: US-Calliditas-2025CAL01822

PATIENT
  Age: 36 Year
  Sex: Male

DRUGS (9)
  1. TARPEYO [Suspect]
     Active Substance: BUDESONIDE
     Indication: IgA nephropathy
     Dosage: TAKE 4 CAPSULES (16 MG) BY MOUTH ONCE DAILY.
     Route: 048
     Dates: start: 20241109, end: 20250818
  2. CARVEDILOL [Concomitant]
     Active Substance: CARVEDILOL
  3. OLMESARTAN [Concomitant]
     Active Substance: OLMESARTAN
  4. SODIUM BICARBONATE [Concomitant]
     Active Substance: SODIUM BICARBONATE
  5. VITAMIN B12 [Concomitant]
     Active Substance: CYANOCOBALAMIN
  6. OYSTER SHELL CALCIUM WITH VITAMIN D [CALCIUM;COLECALCIFEROL] [Concomitant]
  7. OMEPRAZOLE [Concomitant]
     Active Substance: OMEPRAZOLE
  8. ZINC GLUCONATE [Concomitant]
     Active Substance: ZINC GLUCONATE
  9. AMLODIPINE [Concomitant]
     Active Substance: AMLODIPINE BESYLATE

REACTIONS (7)
  - Blood pressure increased [Recovered/Resolved]
  - Agitation [Recovering/Resolving]
  - Upper-airway cough syndrome [Recovered/Resolved]
  - Ear infection [Recovered/Resolved]
  - Furuncle [Not Recovered/Not Resolved]
  - Insomnia [Not Recovered/Not Resolved]
  - Peripheral swelling [Not Recovered/Not Resolved]

NARRATIVE: CASE EVENT DATE: 20250412
